FAERS Safety Report 14935178 (Version 1)
Quarter: 2018Q2

REPORT INFORMATION
  Report Type: Spontaneous
  Country: UM (occurrence: UM)
  Receive Date: 20180507
  Receipt Date: 20180507
  Transmission Date: 20180711
  Serious: Yes (Hospitalization, Disabling, Other)
  Sender: FDA-Public Use
  Company Number: None

PATIENT
  Age: 44 Year
  Sex: Male
  Weight: 130.5 kg

DRUGS (7)
  1. PLAQUENIL [Concomitant]
     Active Substance: HYDROXYCHLOROQUINE SULFATE
  2. WELLBURN [Concomitant]
  3. BENLYSTA [Suspect]
     Active Substance: BELIMUMAB
     Indication: SYSTEMIC LUPUS ERYTHEMATOSUS
     Dosage: ?          OTHER FREQUENCY:ONCE A MONTH INFUS;?
     Route: 042
     Dates: start: 20130604, end: 20150505
  4. NORVASC [Concomitant]
     Active Substance: AMLODIPINE BESYLATE
  5. ROXICODONE [Concomitant]
     Active Substance: OXYCODONE HYDROCHLORIDE
  6. PETCOCET [Concomitant]
  7. LAXIS [Concomitant]

REACTIONS (2)
  - Renal cyst [None]
  - Nephrolithiasis [None]

NARRATIVE: CASE EVENT DATE: 20150504
